FAERS Safety Report 4445656-2 (Version None)
Quarter: 2004Q3

REPORT INFORMATION
  Report Type: 
  Country: None (occurrence: None)
  Receive Date: 20040902
  Receipt Date: 20040830
  Transmission Date: 20050211
  Serious: Yes (Death)
  Sender: FDA-Public Use
  Company Number: TCI2004A03300

PATIENT
  Age: 7 Decade

DRUGS (2)
  1. TAKEPRON CAPSULES 30 (LANSOPRAZOLE) (CAPSULES) [Suspect]
     Dosage: (1D) PER ORAL
     Route: 048
  2. PANALDINE(TICLOPIDINE HYDROCHLORIDE) (PREPARATION FOR ORAL USE (NOS) [Concomitant]

REACTIONS (1)
  - HEPATITIS FULMINANT [None]
